FAERS Safety Report 10250231 (Version 2)
Quarter: 2014Q2

REPORT INFORMATION
  Report Type: Spontaneous
  Country: US (occurrence: US)
  Receive Date: 20140620
  Receipt Date: 20140620
  Transmission Date: 20141212
  Serious: No
  Sender: FDA-Public Use
  Company Number: US-ASTRAZENECA-2014SE44504

PATIENT
  Age: 89 Year
  Sex: Male
  Weight: 72.6 kg

DRUGS (2)
  1. NEXIUM 24HR [Suspect]
     Indication: DYSPEPSIA
     Route: 048
     Dates: start: 201406
  2. NEXIUM 24HR [Suspect]
     Indication: DYSPEPSIA
     Route: 048
     Dates: start: 201406

REACTIONS (3)
  - Dyspepsia [Not Recovered/Not Resolved]
  - Abdominal pain upper [Not Recovered/Not Resolved]
  - Drug ineffective [Unknown]
